FAERS Safety Report 12257736 (Version 1)
Quarter: 2016Q2

REPORT INFORMATION
  Report Type: Other
  Country: CA (occurrence: CA)
  Receive Date: 20160412
  Receipt Date: 20160412
  Transmission Date: 20160815
  Serious: Yes (Other)
  Sender: FDA-Public Use
  Company Number: CA-ASTELLAS-2016US013401

PATIENT
  Age: 50 Year
  Sex: Female

DRUGS (1)
  1. PROTOPIC [Suspect]
     Active Substance: TACROLIMUS
     Indication: ECZEMA
     Dosage: UNK, ONCE DAILY
     Route: 065

REACTIONS (3)
  - Eyelid oedema [Unknown]
  - Application site pain [Unknown]
  - Application site pruritus [Unknown]
